FAERS Safety Report 19904900 (Version 1)
Quarter: 2021Q3

REPORT INFORMATION
  Report Type: Spontaneous
  Country: US (occurrence: US)
  Receive Date: 20210930
  Receipt Date: 20210930
  Transmission Date: 20211014
  Serious: No
  Sender: FDA-Public Use
  Company Number: None

PATIENT
  Age: 33 Year
  Sex: Male

DRUGS (4)
  1. LITHIUM. [Concomitant]
     Active Substance: LITHIUM
     Dates: start: 20201030, end: 20210430
  2. BENZTROPINE. [Concomitant]
     Active Substance: BENZTROPINE
  3. LUMATEPERONE. [Suspect]
     Active Substance: LUMATEPERONE
     Indication: SCHIZOPHRENIA
     Dates: start: 20210127, end: 20210503
  4. DIAZEPAM. [Concomitant]
     Active Substance: DIAZEPAM

REACTIONS (5)
  - Decreased activity [None]
  - Emotional distress [None]
  - Pruritus [None]
  - Condition aggravated [None]
  - Obsessive-compulsive disorder [None]

NARRATIVE: CASE EVENT DATE: 20210201
